FAERS Safety Report 5300558-4 (Version None)
Quarter: 2007Q2

REPORT INFORMATION
  Report Type: 
  Country: None (occurrence: None)
  Receive Date: 20070418
  Receipt Date: 20070417
  Transmission Date: 20071010
  Serious: Yes (Other)
  Sender: FDA-Public Use
  Company Number: US-GLAXOSMITHKLINE-A0640487A

PATIENT
  Sex: Female

DRUGS (1)
  1. SEREVENT [Suspect]
     Route: 065
     Dates: end: 20060401

REACTIONS (2)
  - ASTHMA [None]
  - GENERAL PHYSICAL HEALTH DETERIORATION [None]
